FAERS Safety Report 22055757 (Version 1)
Quarter: 2023Q1

REPORT INFORMATION
  Report Type: Spontaneous
  Country: US (occurrence: US)
  Receive Date: 20230302
  Receipt Date: 20230302
  Transmission Date: 20230418
  Serious: Yes (Death)
  Sender: FDA-Public Use
  Company Number: US-RIGEL Pharmaceuticals, INC-2023FOS000230

PATIENT
  Age: 68 Year
  Sex: Male
  Weight: 72.109 kg

DRUGS (1)
  1. TAVALISSE [Suspect]
     Active Substance: FOSTAMATINIB
     Indication: Immune thrombocytopenia
     Dosage: 150 MG, BID
     Route: 048
     Dates: start: 20200320, end: 20230226

REACTIONS (1)
  - Death [Fatal]

NARRATIVE: CASE EVENT DATE: 20230226
